FAERS Safety Report 25434063 (Version 1)
Quarter: 2025Q2

REPORT INFORMATION
  Report Type: Spontaneous
  Country: US (occurrence: None)
  Receive Date: 20250613
  Receipt Date: 20250613
  Transmission Date: 20250716
  Serious: Yes (Hospitalization)
  Sender: FDA-CTU
  Company Number: None

PATIENT
  Sex: Male

DRUGS (1)
  1. AMBRISENTAN [Suspect]
     Active Substance: AMBRISENTAN
     Dosage: FREQUENCY : DAILY;?
     Route: 048

REACTIONS (6)
  - Product dose omission in error [None]
  - Infection [None]
  - Illness [None]
  - Fall [None]
  - Loss of consciousness [None]
  - Product use issue [None]
